FAERS Safety Report 9888337 (Version 1)
Quarter: 2014Q1

REPORT INFORMATION
  Report Type: Spontaneous
  Country: TN (occurrence: None)
  Receive Date: 20140207
  Receipt Date: 20140207
  Transmission Date: 20141002
  Serious: Yes (Other)
  Sender: FDA-Public Use
  Company Number: 2014P1000816

PATIENT
  Age: 7 Year
  Sex: Male

DRUGS (2)
  1. PHENOBARBITAL [Suspect]
     Indication: CONVULSION
  2. LAMOTRIGINE [Suspect]
     Indication: CONVULSION

REACTIONS (1)
  - Drug reaction with eosinophilia and systemic symptoms [None]
